FAERS Safety Report 7370225-4 (Version None)
Quarter: 2011Q1

REPORT INFORMATION
  Report Type: 
  Country: None (occurrence: None)
  Receive Date: 20110323
  Receipt Date: 20100914
  Transmission Date: 20110831
  Serious: Yes (Other)
  Sender: FDA-Public Use
  Company Number: US-ASTRAZENECA-2010SE45193

PATIENT
  Age: 40 Year
  Sex: Male

DRUGS (3)
  1. LOPID [Suspect]
  2. ONGLYZA [Suspect]
     Route: 048
  3. LISINOPRIL [Suspect]
     Route: 048

REACTIONS (1)
  - PANCREATITIS [None]
